FAERS Safety Report 26057005 (Version 1)
Quarter: 2025Q4

REPORT INFORMATION
  Report Type: Spontaneous
  Country: US (occurrence: US)
  Receive Date: 20251118
  Receipt Date: 20251118
  Transmission Date: 20260117
  Serious: No
  Sender: US WORLDMEDS
  Company Number: US-UCTP-UCT202510-000170

PATIENT
  Age: 33 Year
  Sex: Male

DRUGS (1)
  1. TECELRA [Suspect]
     Active Substance: AFAMITRESGENE AUTOLEUCEL
     Indication: Product used for unknown indication
     Dosage: NOT PROVIDED
     Dates: start: 20250929

REACTIONS (1)
  - Pyrexia [Recovered/Resolved]
